FAERS Safety Report 23710315 (Version 1)
Quarter: 2024Q2

REPORT INFORMATION
  Report Type: Spontaneous
  Country: TR (occurrence: TR)
  Receive Date: 20240405
  Receipt Date: 20240405
  Transmission Date: 20240716
  Serious: Yes (Other)
  Sender: FDA-Public Use
  Company Number: TR-002147023-NVSC2024TR068792

PATIENT
  Sex: Male

DRUGS (2)
  1. METHYLPHENIDATE [Suspect]
     Active Substance: METHYLPHENIDATE
     Indication: Attention deficit hyperactivity disorder
     Dosage: 10 MG, QD
     Route: 065
  2. METHYLPHENIDATE [Suspect]
     Active Substance: METHYLPHENIDATE
     Dosage: 40 MG, QD
     Route: 065

REACTIONS (1)
  - Dystonia [Recovered/Resolved]
